FAERS Safety Report 13701831 (Version 1)
Quarter: 2017Q2

REPORT INFORMATION
  Report Type: Spontaneous
  Country: FR (occurrence: FR)
  Receive Date: 20170629
  Receipt Date: 20170629
  Transmission Date: 20170830
  Serious: Yes (Death, Life-Threatening)
  Sender: FDA-Public Use
  Company Number: FR-SA-2017SA114734

PATIENT
  Age: 39 Year
  Sex: Male

DRUGS (9)
  1. ZYLORIC [Concomitant]
     Active Substance: ALLOPURINOL
     Route: 048
     Dates: start: 20170510
  2. TIORFAN [Suspect]
     Active Substance: RACECADOTRIL
     Dosage: FREQUENCY- 3 DAYS
     Route: 048
     Dates: start: 20170510
  3. FASTURTEC [Suspect]
     Active Substance: RASBURICASE
     Route: 042
     Dates: start: 20170511
  4. LEDERFOLINE [Concomitant]
     Active Substance: LEUCOVORIN CALCIUM
     Dosage: 25 MG X 3/WEEK
     Route: 065
  5. INEXIUM [Concomitant]
     Active Substance: ESOMEPRAZOLE
     Route: 065
  6. DARZALEX [Suspect]
     Active Substance: DARATUMUMAB
     Indication: T-CELL LYMPHOMA
     Route: 042
     Dates: start: 20170511
  7. BACTRIM [Concomitant]
     Active Substance: SULFAMETHOXAZOLE\TRIMETHOPRIM
     Dosage: 3 TIMES A WEEK
     Route: 065
  8. LEDERFOLINE [Concomitant]
     Active Substance: LEUCOVORIN CALCIUM
     Dosage: 25 MG 3 TIMES/WEEK
     Route: 065
  9. ZELITREX [Concomitant]
     Active Substance: VALACYCLOVIR HYDROCHLORIDE
     Dosage: 500 MG 2X/DAY
     Route: 065

REACTIONS (2)
  - Acute respiratory distress syndrome [Fatal]
  - Tumour lysis syndrome [Fatal]

NARRATIVE: CASE EVENT DATE: 20170511
